FAERS Safety Report 24611087 (Version 1)
Quarter: 2024Q4

REPORT INFORMATION
  Report Type: Spontaneous
  Country: US (occurrence: US)
  Receive Date: 20241113
  Receipt Date: 20241113
  Transmission Date: 20250115
  Serious: Yes (Death)
  Sender: AMGEN
  Company Number: US-AMGEN-USASP2024220826

PATIENT
  Age: 50 Year
  Sex: Male

DRUGS (14)
  1. PREDNISONE [Suspect]
     Active Substance: PREDNISONE
     Indication: Granuloma
     Dosage: UNK; TAPER
     Route: 065
  2. INFLIXIMAB [Suspect]
     Active Substance: INFLIXIMAB
     Indication: Granuloma
     Dosage: 5 MILLIGRAM/KILOGRAM
     Route: 040
  3. ISONIAZID [Concomitant]
     Active Substance: ISONIAZID
     Indication: Tuberculosis
  4. RIFAMPIN [Concomitant]
     Active Substance: RIFAMPIN
     Indication: Tuberculosis
  5. PYRAZINAMIDE [Concomitant]
     Active Substance: PYRAZINAMIDE
     Indication: Tuberculosis
  6. LEVOFLOXACIN [Concomitant]
     Active Substance: LEVOFLOXACIN
     Indication: Tuberculosis
  7. RIFABUTIN [Concomitant]
     Active Substance: RIFABUTIN
     Indication: Tuberculosis
  8. ETHAMBUTOL [Concomitant]
     Active Substance: ETHAMBUTOL HYDROCHLORIDE
     Indication: Tuberculosis
  9. AMIKACIN [Concomitant]
     Active Substance: AMIKACIN
     Indication: Tuberculosis
  10. LINEZOLID [Concomitant]
     Active Substance: LINEZOLID
     Indication: Tuberculosis
  11. MOXIFLOXACIN [Concomitant]
     Active Substance: MOXIFLOXACIN
     Indication: Tuberculosis
  12. CYCLOSERINE [Concomitant]
     Active Substance: CYCLOSERINE
     Indication: Tuberculosis
  13. PARA-AMINOSALICYLIC ACID [Concomitant]
     Active Substance: AMINOSALICYLIC ACID
     Indication: Tuberculosis
  14. METHYLPREDNISOLONE [Concomitant]
     Active Substance: METHYLPREDNISOLONE
     Indication: Granuloma
     Dosage: UNK, 3 DAYS
     Route: 040

REACTIONS (4)
  - Death [Fatal]
  - Bedridden [Unknown]
  - Hospice care [Unknown]
  - Off label use [Unknown]
